FAERS Safety Report 6408017-2 (Version None)
Quarter: 2009Q4

REPORT INFORMATION
  Report Type: 
  Country: None (occurrence: None)
  Receive Date: 20091021
  Receipt Date: 20091012
  Transmission Date: 20100525
  Serious: Yes (Hospitalization, Other)
  Sender: FDA-Public Use
  Company Number: US-BIOGENIDEC-2009BI011881

PATIENT
  Age: 62 Year
  Sex: Female

DRUGS (2)
  1. AVONEX [Suspect]
     Indication: MULTIPLE SCLEROSIS
     Route: 030
     Dates: end: 20090501
  2. AVONEX [Suspect]
     Route: 030
     Dates: start: 19970401

REACTIONS (9)
  - ANXIETY [None]
  - CARDIAC HYPERTROPHY [None]
  - DEPRESSION [None]
  - HYPERTENSION [None]
  - LIMB DISCOMFORT [None]
  - MEMORY IMPAIRMENT [None]
  - PARAESTHESIA [None]
  - SUICIDAL IDEATION [None]
  - SYNCOPE [None]
